FAERS Safety Report 12435596 (Version 1)
Quarter: 2016Q2

REPORT INFORMATION
  Report Type: Spontaneous
  Country: US (occurrence: US)
  Receive Date: 20160603
  Receipt Date: 20160603
  Transmission Date: 20160815
  Serious: No
  Sender: FDA-Public Use
  Company Number: US-ROCHE-1725924

PATIENT
  Age: 55 Year
  Sex: Female

DRUGS (1)
  1. ACTEMRA [Suspect]
     Active Substance: TOCILIZUMAB
     Indication: RHEUMATOID ARTHRITIS
     Dosage: 162 MG PER 0.9 ML
     Route: 058
     Dates: start: 20151003, end: 20160303

REACTIONS (2)
  - Drug ineffective [Unknown]
  - Oral disorder [Unknown]

NARRATIVE: CASE EVENT DATE: 20160314
